FAERS Safety Report 11358884 (Version 1)
Quarter: 2015Q3

REPORT INFORMATION
  Report Type: Spontaneous
  Country: US (occurrence: None)
  Receive Date: 20150807
  Receipt Date: 20150807
  Transmission Date: 20151125
  Serious: No
  Sender: FDA-Public Use
  Company Number: None

PATIENT
  Age: 80 Year
  Sex: Male
  Weight: 70.31 kg

DRUGS (9)
  1. ASPIRIN. [Concomitant]
     Active Substance: ASPIRIN
  2. OMNISCAN [Suspect]
     Active Substance: GADODIAMIDE
     Indication: NUCLEAR MAGNETIC RESONANCE IMAGING
     Dosage: ONE ADMINISTRATION INTO A VEIN
     Route: 042
     Dates: start: 20150803
  3. CALCIUM [Concomitant]
     Active Substance: CALCIUM
  4. DOXAZOSIN [Concomitant]
     Active Substance: DOXAZOSIN\DOXAZOSIN MESYLATE
  5. VITAMIN D [Concomitant]
     Active Substance: CHOLECALCIFEROL
  6. CRESTOR [Concomitant]
     Active Substance: ROSUVASTATIN CALCIUM
  7. FORTEO [Concomitant]
     Active Substance: TERIPARATIDE
  8. OMNISCAN [Suspect]
     Active Substance: GADODIAMIDE
     Indication: SCAN WITH CONTRAST
     Dosage: ONE ADMINISTRATION INTO A VEIN
     Route: 042
     Dates: start: 20150803
  9. METOPROLOL [Concomitant]
     Active Substance: METOPROLOL

REACTIONS (1)
  - Urine output decreased [None]

NARRATIVE: CASE EVENT DATE: 20150803
